FAERS Safety Report 6195458-4 (Version None)
Quarter: 2009Q2

REPORT INFORMATION
  Report Type: 
  Country: None (occurrence: None)
  Receive Date: 20090519
  Receipt Date: 20090514
  Transmission Date: 20091009
  Serious: Yes (Hospitalization)
  Sender: FDA-Public Use
  Company Number: FR-PFIZER INC-2009212873

PATIENT
  Age: 59 Year

DRUGS (7)
  1. TAHOR [Suspect]
     Dosage: 80 MG, 1X/DAY
     Route: 048
     Dates: start: 20090330, end: 20090430
  2. PLAVIX [Suspect]
     Dosage: 150 MG, 1X/DAY
     Route: 048
     Dates: start: 20090331, end: 20090430
  3. CANDESARTAN CILEXETIL [Suspect]
     Dosage: 16 MG, 1X/DAY
     Route: 048
     Dates: start: 20090417, end: 20090430
  4. OMACOR [Concomitant]
     Dosage: UNK
     Dates: start: 20090330, end: 20090430
  5. NITROGLYCERIN [Concomitant]
     Dosage: UNK DF, 1X/DAY
     Route: 048
     Dates: start: 20090330
  6. DETENSIEL [Concomitant]
     Dosage: 10 MG, 1X/DAY
     Route: 048
  7. KARDEGIC [Concomitant]
     Dosage: UNK
     Dates: start: 20090330

REACTIONS (1)
  - NEUTROPENIA [None]
